FAERS Safety Report 15525484 (Version 3)
Quarter: 2019Q4

REPORT INFORMATION
  Report Type: Report from Study
  Country: GB (occurrence: GB)
  Receive Date: 20181018
  Receipt Date: 20191208
  Transmission Date: 20200122
  Serious: Yes (Other)
  Sender: FDA-Public Use
  Company Number: GB-AMGEN-GBRNI2018144743

PATIENT
  Age: 63 Year
  Sex: Female

DRUGS (1)
  1. ETANERCEPT [Suspect]
     Active Substance: ETANERCEPT
     Indication: SERONEGATIVE ARTHRITIS
     Dosage: UNK
     Route: 058
     Dates: start: 20170315, end: 201805

REACTIONS (2)
  - Lung neoplasm [Unknown]
  - Atelectasis [Unknown]

NARRATIVE: CASE EVENT DATE: 20180830
